FAERS Safety Report 10660806 (Version 2)
Quarter: 2014Q4

REPORT INFORMATION
  Report Type: Spontaneous
  Country: AU (occurrence: AU)
  Receive Date: 20141217
  Receipt Date: 20141231
  Transmission Date: 20150529
  Serious: Yes (Other)
  Sender: FDA-Public Use
  Company Number: AU-BAUSCH-BL-2014-010572

PATIENT
  Age: 75 Year
  Sex: Female
  Weight: 88 kg

DRUGS (8)
  1. OROXINE [Concomitant]
     Active Substance: LEVOTHYROXINE SODIUM
     Indication: PRODUCT USED FOR UNKNOWN INDICATION
  2. ZOVIRAX [Suspect]
     Active Substance: ACYCLOVIR
     Indication: EYE PAIN
     Route: 061
     Dates: start: 20140826, end: 20140827
  3. ZOVIRAX [Suspect]
     Active Substance: ACYCLOVIR
     Indication: ULCERATIVE KERATITIS
  4. MOBIC [Concomitant]
     Active Substance: MELOXICAM
     Indication: PRODUCT USED FOR UNKNOWN INDICATION
  5. MICARDIS [Concomitant]
     Active Substance: TELMISARTAN
     Indication: PRODUCT USED FOR UNKNOWN INDICATION
  6. NEXIUM [Concomitant]
     Active Substance: ESOMEPRAZOLE MAGNESIUM
     Indication: PRODUCT USED FOR UNKNOWN INDICATION
  7. ZOVIRAX [Suspect]
     Active Substance: ACYCLOVIR
     Indication: FOREIGN BODY SENSATION IN EYES
  8. PANADOL [Concomitant]
     Active Substance: ACETAMINOPHEN
     Indication: PRODUCT USED FOR UNKNOWN INDICATION

REACTIONS (1)
  - Chemical burns of eye [Recovered/Resolved]

NARRATIVE: CASE EVENT DATE: 2014
